FAERS Safety Report 4355556-4 (Version None)
Quarter: 2004Q2

REPORT INFORMATION
  Report Type: 
  Country: None (occurrence: None)
  Receive Date: 20040430
  Receipt Date: 20030825
  Transmission Date: 20050107
  Serious: Yes (Death)
  Sender: FDA-Public Use
  Company Number: KDL022102

PATIENT
  Age: 67 Year
  Sex: Female
  Weight: 61.3 kg

DRUGS (9)
  1. EPOGEN [Suspect]
     Indication: ANAEMIA OF MALIGNANT DISEASE
     Dosage: 40000 U, WEEKLY, SC
     Route: 058
     Dates: start: 20021007
  2. LEVOTHYROXINE SODIUM [Concomitant]
  3. FUROSEMIDE [Concomitant]
  4. ASPIRIN [Concomitant]
  5. WARFARIN SODIUM [Concomitant]
  6. SPIRONOLACTONE [Concomitant]
  7. GLIPIZIDE [Concomitant]
  8. ISOSORBIDE DINITRATE [Concomitant]
  9. POTASSIUM [Concomitant]

REACTIONS (6)
  - DYSPNOEA [None]
  - MALIGNANT NEOPLASM PROGRESSION [None]
  - NEUTROPENIA [None]
  - OEDEMA PERIPHERAL [None]
  - PLEURAL EFFUSION [None]
  - THROMBOCYTOPENIA [None]
